FAERS Safety Report 20010586 (Version 4)
Quarter: 2022Q1

REPORT INFORMATION
  Report Type: Spontaneous
  Country: JP (occurrence: JP)
  Receive Date: 20211029
  Receipt Date: 20220131
  Transmission Date: 20220423
  Serious: Yes (Hospitalization)
  Sender: FDA-Public Use
  Company Number: JP-NOVARTISPH-NVSJ2021JP017473

PATIENT
  Age: 76 Year
  Sex: Female

DRUGS (1)
  1. EXELON PATCH [Suspect]
     Active Substance: RIVASTIGMINE
     Indication: Dementia Alzheimer^s type
     Dosage: PATCH10(CM2)
     Route: 062

REACTIONS (5)
  - Cardiac failure [Recovered/Resolved]
  - Application site erythema [Recovering/Resolving]
  - Application site pruritus [Recovering/Resolving]
  - Incorrect product administration duration [Recovering/Resolving]
  - Intentional removal of drug delivery system by patient [Recovering/Resolving]

NARRATIVE: CASE EVENT DATE: 20211007
